FAERS Safety Report 10227030 (Version 1)
Quarter: 2014Q2

REPORT INFORMATION
  Report Type: Spontaneous
  Country: JP (occurrence: JP)
  Receive Date: 20140610
  Receipt Date: 20140610
  Transmission Date: 20141212
  Serious: Yes (Death)
  Sender: FDA-Public Use
  Company Number: JP-UCBSA-2014001099

PATIENT
  Age: 11 Month
  Sex: Female

DRUGS (3)
  1. XYZALL [Suspect]
     Indication: RHINORRHOEA
     Dosage: 2.5 ML, ONCE DAILY (QD)
     Route: 048
     Dates: start: 20140514
  2. PASETOCIN [Suspect]
     Indication: OTITIS MEDIA
     Route: 048
     Dates: start: 20140514
  3. EPCALOL [Suspect]
     Indication: COUGH
     Dosage: UNK
     Route: 048
     Dates: start: 20140514

REACTIONS (1)
  - Death [Fatal]
